FAERS Safety Report 8029109-0 (Version None)
Quarter: 2012Q1

REPORT INFORMATION
  Report Type: 
  Country: None (occurrence: None)
  Receive Date: 20120106
  Receipt Date: 20120103
  Transmission Date: 20120608
  Serious: Yes (Other)
  Sender: FDA-Public Use
  Company Number: CA-ABBOTT-11P-028-0881157-00

PATIENT
  Sex: Male

DRUGS (1)
  1. HUMIRA [Suspect]
     Indication: RHEUMATOID ARTHRITIS
     Route: 058
     Dates: start: 20111012

REACTIONS (8)
  - BLISTER [None]
  - VARICOSE ULCERATION [None]
  - VARICOSE VEIN RUPTURED [None]
  - HAEMORRHAGE [None]
  - WOUND COMPLICATION [None]
  - DRUG INEFFECTIVE [None]
  - SKIN ULCER [None]
  - LISTLESS [None]
